FAERS Safety Report 9475186 (Version 1)
Quarter: 2013Q3

REPORT INFORMATION
  Report Type: Spontaneous
  Country: DE (occurrence: None)
  Receive Date: 20130820
  Receipt Date: 20130820
  Transmission Date: 20140515
  Serious: Yes (Hospitalization, Other)
  Sender: FDA-Public Use
  Company Number: GER/GER/13/0034064

PATIENT
  Age: 1 Day
  Sex: Male
  Weight: 2.5 kg

DRUGS (1)
  1. LAMOTRIGINE [Suspect]
     Indication: PRODUCT USED FOR UNKNOWN INDICATION
     Route: 064
     Dates: start: 20090116, end: 20090921

REACTIONS (7)
  - Maternal drugs affecting foetus [None]
  - Extrasystoles [None]
  - Premature baby [None]
  - Caesarean section [None]
  - Tachypnoea [None]
  - Apnoea neonatal [None]
  - Acute lung injury [None]
